FAERS Safety Report 7389385-4 (Version None)
Quarter: 2011Q2

REPORT INFORMATION
  Report Type: 
  Country: None (occurrence: None)
  Receive Date: 20110401
  Receipt Date: 20110325
  Transmission Date: 20111010
  Serious: Yes (Death)
  Sender: FDA-Public Use
  Company Number: B0709884A

PATIENT
  Age: 35 Year
  Sex: Male

DRUGS (2)
  1. LEUKERAN [Suspect]
     Route: 065
  2. ALKERAN [Suspect]
     Route: 065

REACTIONS (4)
  - APHONIA [None]
  - DEATH [None]
  - APHASIA [None]
  - EPILEPSY [None]
